FAERS Safety Report 5317790-6 (Version None)
Quarter: 2007Q2

REPORT INFORMATION
  Report Type: 
  Country: None (occurrence: None)
  Receive Date: 20070507
  Receipt Date: 20070430
  Transmission Date: 20071010
  Serious: Yes (Other)
  Sender: FDA-Public Use
  Company Number: US-AVENTIS-200713175US

PATIENT
  Sex: Female

DRUGS (10)
  1. LANTUS [Suspect]
     Dates: start: 20070101
  2. APIDRA [Suspect]
     Dosage: DOSE: 8-10; FREQUENCY: BEFORE MEALS
     Dates: start: 20070101
  3. PROTONIX [Concomitant]
     Dosage: DOSE: UNK
  4. PRAVACHOL [Concomitant]
     Dosage: DOSE: UNK
  5. LEVOXYL [Concomitant]
     Dosage: DOSE: UNK
  6. FUROSEMIDE [Concomitant]
     Dosage: DOSE: UNK
  7. LANOXIN [Concomitant]
     Dosage: DOSE: UNK
  8. COREG [Concomitant]
     Dosage: DOSE: UNK
  9. RENAGEL                            /01459902/ [Concomitant]
     Dosage: DOSE: UNK
  10. ALLEGRA [Concomitant]

REACTIONS (4)
  - BLOOD GLUCOSE DECREASED [None]
  - BLOOD GLUCOSE INCREASED [None]
  - BRADYCARDIA [None]
  - HYPERHIDROSIS [None]
